FAERS Safety Report 5441780-6 (Version None)
Quarter: 2007Q3

REPORT INFORMATION
  Report Type: 
  Country: None (occurrence: None)
  Receive Date: 20070830
  Receipt Date: 20070830
  Transmission Date: 20080115
  Serious: Yes (Other)
  Sender: FDA-Public Use
  Company Number: None

PATIENT
  Age: 46 Year
  Sex: Female
  Weight: 58.9676 kg

DRUGS (2)
  1. BUPROPION HCL [Suspect]
     Indication: DEPRESSION
     Dosage: 1 1X/DAY PO
     Route: 048
     Dates: start: 20070821, end: 20070829
  2. BUPROPION HCL [Suspect]
     Dosage: 1 1X/DAY PO
     Route: 048
     Dates: start: 20070528, end: 20070820

REACTIONS (5)
  - ANXIETY [None]
  - CONDITION AGGRAVATED [None]
  - DEPRESSION [None]
  - PHARMACEUTICAL PRODUCT COMPLAINT [None]
  - THERAPEUTIC RESPONSE UNEXPECTED WITH DRUG SUBSTITUTION [None]
